FAERS Safety Report 18643428 (Version 1)
Quarter: 2020Q4

REPORT INFORMATION
  Report Type: Spontaneous
  Country: GR (occurrence: GR)
  Receive Date: 20201221
  Receipt Date: 20201221
  Transmission Date: 20210114
  Serious: Yes (Other)
  Sender: FDA-Public Use
  Company Number: GR-PFIZER INC-2020497418

PATIENT
  Sex: Female

DRUGS (11)
  1. EPIRUBICIN [Concomitant]
     Active Substance: EPIRUBICIN
     Dosage: 90 MG/M2 EVERY 21 DAYS, RECEIVED 8 CYCLES
     Dates: end: 201806
  2. OLAPARIB. [Suspect]
     Active Substance: OLAPARIB
     Dosage: 150 MG, FREQ:12 H;
     Route: 048
  3. TAMOXIFEN [Suspect]
     Active Substance: TAMOXIFEN
     Indication: BREAST CANCER METASTATIC
     Route: 048
  4. PALBOCICLIB [Suspect]
     Active Substance: PALBOCICLIB
     Indication: BREAST CANCER FEMALE
     Dosage: 125 MG, 1X/DAY (125 MG 1 X1 FOR 21 DAYS)
     Route: 048
  5. EXEMESTANE. [Concomitant]
     Active Substance: EXEMESTANE
     Dosage: 25 MG, 1X/DAY
     Dates: start: 201609, end: 201612
  6. EVEROLIMUS. [Concomitant]
     Active Substance: EVEROLIMUS
     Dates: start: 201609, end: 201612
  7. FULVESTRANT. [Suspect]
     Active Substance: FULVESTRANT
     Indication: BREAST CANCER FEMALE
     Dosage: UNK
     Route: 030
  8. NAB-PACLITAXEL [Concomitant]
     Active Substance: PACLITAXEL
     Dosage: 125 MG/M2, COMPLETED 5 CYCLES
     Dates: end: 201905
  9. ERIBULIN [Concomitant]
     Active Substance: ERIBULIN
  10. CAPECITABINE. [Concomitant]
     Active Substance: CAPECITABINE
     Dosage: 3500 MG (2000 MG AM - 1500 MG PM)
  11. LETROZOLE. [Concomitant]
     Active Substance: LETROZOLE
     Dosage: 3 MG, 1X/DAY
     Dates: start: 2013

REACTIONS (3)
  - Uterine disorder [Unknown]
  - Neoplasm recurrence [Unknown]
  - Neoplasm progression [Unknown]
